FAERS Safety Report 25809760 (Version 1)
Quarter: 2025Q3

REPORT INFORMATION
  Report Type: Report from Study
  Country: US (occurrence: US)
  Receive Date: 20250916
  Receipt Date: 20250916
  Transmission Date: 20251021
  Serious: Yes (Other)
  Sender: ABBVIE
  Company Number: US-ABBVIE-6460271

PATIENT
  Sex: Male

DRUGS (1)
  1. SKYRIZI [Suspect]
     Active Substance: RISANKIZUMAB-RZAA
     Indication: Crohn^s disease
     Route: 058
     Dates: start: 20240411

REACTIONS (4)
  - Pancreatic disorder [Recovering/Resolving]
  - Pancreatic duct obstruction [Recovering/Resolving]
  - Pancreatic leak [Recovering/Resolving]
  - Pancreatic calcification [Recovering/Resolving]
